FAERS Safety Report 11050679 (Version 2)
Quarter: 2015Q2

REPORT INFORMATION
  Report Type: Spontaneous
  Country: US (occurrence: US)
  Receive Date: 20150421
  Receipt Date: 20150528
  Transmission Date: 20150821
  Serious: Yes (Hospitalization)
  Sender: FDA-Public Use
  Company Number: US-GLENMARK GENERICS INC.-2015GMK016196

PATIENT

DRUGS (23)
  1. ONDANSETRON [Suspect]
     Active Substance: ONDANSETRON
     Indication: PAIN
     Dosage: UNK
     Route: 042
  2. DILAUDID [Concomitant]
     Active Substance: HYDROMORPHONE HYDROCHLORIDE
     Indication: ABDOMINAL PAIN
     Dosage: 10 MG, QD
     Route: 048
     Dates: start: 20150203
  3. DILAUDID [Concomitant]
     Active Substance: HYDROMORPHONE HYDROCHLORIDE
     Indication: PELVIC PAIN
  4. ISOSORBIDE MONONITE [Concomitant]
     Indication: MUSCLE SPASMS
  5. HYDROMORPHONE [Concomitant]
     Active Substance: HYDROMORPHONE
     Indication: ABDOMINAL PAIN
     Dosage: 2 MG EVERY 6 HOURS PRN
     Route: 048
     Dates: start: 20150203
  6. ISOSORBIDE MONONITE [Concomitant]
     Indication: ARTERIAL SPASM
  7. ST JOHN^S-WORT [Concomitant]
     Indication: DEPRESSION
     Dosage: 300 MG, TID
     Route: 048
     Dates: start: 201502
  8. ONDANSETRON ORALLY DISINTEGRATING TABLETS, USP [Suspect]
     Active Substance: ONDANSETRON
     Indication: NAUSEA
     Dosage: 2 DF, QD
     Route: 048
     Dates: start: 20150203, end: 20150411
  9. ONDANSETRON ORALLY DISINTEGRATING TABLETS, USP [Suspect]
     Active Substance: ONDANSETRON
     Indication: VOMITING
  10. NITROSTAT [Concomitant]
     Active Substance: NITROGLYCERIN
     Indication: ARTERIAL SPASM
  11. LEVETIRACETAM. [Concomitant]
     Active Substance: LEVETIRACETAM
     Indication: EPILEPSY
     Dosage: 5 DF, QD (2 TABLETS EVERY MORNING AND 3 TABLETS EVERY NIGHT)
     Route: 048
     Dates: start: 2010
  12. PROVENTIL                          /00139501/ [Concomitant]
     Indication: ASTHMA
  13. CRANBERRY                          /01512301/ [Concomitant]
     Indication: URINARY TRACT INFECTION
  14. ISOSORBIDE MONONITE [Concomitant]
     Indication: ANGINA PECTORIS
     Dosage: 60 MG, AM
     Route: 048
     Dates: start: 2009
  15. FLUTICASONE [Concomitant]
     Active Substance: FLUTICASONE\FLUTICASONE PROPIONATE
     Indication: HYPERSENSITIVITY
     Dosage: 50 ?G, QD
     Route: 045
     Dates: start: 2012
  16. CRANBERRY                          /01512301/ [Concomitant]
     Indication: NEPHROLITHIASIS
     Dosage: 4200 MG, QD
     Route: 048
     Dates: start: 2009
  17. HYDROMORPHONE [Concomitant]
     Active Substance: HYDROMORPHONE
     Indication: PELVIC PAIN
  18. NITROSTAT [Concomitant]
     Active Substance: NITROGLYCERIN
     Indication: MUSCLE SPASMS
  19. LEVOTHYROXINE [Concomitant]
     Active Substance: LEVOTHYROXINE
     Indication: THYROID DISORDER
     Dosage: 0.12 ?G, QD
     Route: 048
     Dates: start: 1987
  20. PROVENTIL                          /00139501/ [Concomitant]
     Indication: BRONCHITIS
     Dosage: UNK, PRN
     Route: 055
     Dates: start: 1988
  21. NITROSTAT [Concomitant]
     Active Substance: NITROGLYCERIN
     Indication: ANGINA PECTORIS
     Dosage: 0.4 MG, PRN
     Route: 060
     Dates: start: 2009
  22. VITAMIN E [Concomitant]
     Active Substance: .ALPHA.-TOCOPHEROL
     Indication: CARDIAC DISORDER
     Dosage: 1000 IU, QD
     Route: 048
     Dates: start: 2009
  23. VITAMIN E [Concomitant]
     Active Substance: .ALPHA.-TOCOPHEROL
     Indication: BREAST DISORDER

REACTIONS (14)
  - Speech disorder [Not Recovered/Not Resolved]
  - Palpitations [Not Recovered/Not Resolved]
  - Photophobia [Not Recovered/Not Resolved]
  - Dizziness [Not Recovered/Not Resolved]
  - Migraine [Not Recovered/Not Resolved]
  - Headache [Not Recovered/Not Resolved]
  - Body temperature abnormal [Not Recovered/Not Resolved]
  - Myalgia [Not Recovered/Not Resolved]
  - Drug ineffective [Unknown]
  - Neck pain [Not Recovered/Not Resolved]
  - Feeling abnormal [Not Recovered/Not Resolved]
  - Heart rate irregular [Not Recovered/Not Resolved]
  - Agitation [Not Recovered/Not Resolved]
  - Mood swings [Not Recovered/Not Resolved]

NARRATIVE: CASE EVENT DATE: 20150326
